FAERS Safety Report 20414288 (Version 1)
Quarter: 2022Q1

REPORT INFORMATION
  Report Type: Report from Study
  Country: TW (occurrence: TW)
  Receive Date: 20220202
  Receipt Date: 20220202
  Transmission Date: 20220423
  Serious: Yes (Other)
  Sender: FDA-Public Use
  Company Number: TW-NOVARTISPH-NVSC2021TW253528

PATIENT
  Age: 30 Year
  Sex: Male

DRUGS (1)
  1. COSENTYX [Suspect]
     Active Substance: SECUKINUMAB
     Indication: Ankylosing spondylitis
     Dosage: 150 MG, PRN (AS NEEDED)
     Route: 058
     Dates: start: 20210505

REACTIONS (3)
  - Ankylosing spondylitis [Unknown]
  - Back pain [Unknown]
  - Tenderness [Unknown]

NARRATIVE: CASE EVENT DATE: 20220118
